FAERS Safety Report 14633299 (Version 4)
Quarter: 2018Q2

REPORT INFORMATION
  Report Type: Report from Study
  Country: JP (occurrence: JP)
  Receive Date: 20180313
  Receipt Date: 20180601
  Transmission Date: 20180711
  Serious: Yes (Death)
  Sender: FDA-Public Use
  Company Number: JP-BEH-2018088659

PATIENT
  Age: 83 Year
  Sex: Male
  Weight: 50 kg

DRUGS (10)
  1. BERIPLEX P/N [Suspect]
     Active Substance: COAGULATION FACTOR IX HUMAN\COAGULATION FACTOR VII HUMAN\COAGULATION FACTOR X HUMAN\PROTEIN C\PROTEIN S HUMAN\PROTHROMBIN
     Indication: ANAEMIA
     Dosage: 2500 IU, SINGLE
     Route: 042
     Dates: start: 20180226, end: 20180226
  2. BERIPLEX P/N [Suspect]
     Active Substance: COAGULATION FACTOR IX HUMAN\COAGULATION FACTOR VII HUMAN\COAGULATION FACTOR X HUMAN\PROTEIN C\PROTEIN S HUMAN\PROTHROMBIN
     Dosage: UNK
     Route: 042
  3. CATABON [Concomitant]
     Active Substance: DOPAMINE HYDROCHLORIDE
     Indication: SHOCK
     Dosage: UNK
     Route: 065
     Dates: start: 20180226, end: 20180304
  4. TRANSAMIN [Concomitant]
     Active Substance: TRANEXAMIC ACID
     Indication: HAEMORRHAGIC DIATHESIS
     Dosage: 1 G, QD
     Route: 065
     Dates: start: 20180226, end: 20180226
  5. BERIPLEX P/N [Suspect]
     Active Substance: COAGULATION FACTOR IX HUMAN\COAGULATION FACTOR VII HUMAN\COAGULATION FACTOR X HUMAN\PROTEIN C\PROTEIN S HUMAN\PROTHROMBIN
     Indication: HAEMORRHAGE
     Dosage: UNK
     Route: 042
  6. NORADRENALINE                      /00127501/ [Concomitant]
     Active Substance: NOREPINEPHRINE
     Indication: SHOCK
     Dosage: UNK
     Route: 065
     Dates: start: 20180226, end: 20180304
  7. ADONA                              /00056903/ [Concomitant]
     Active Substance: CARBAZOCHROME SODIUM SULFONATE
     Indication: HAEMORRHAGIC DIATHESIS
     Dosage: 100 MG, UNK
     Route: 065
     Dates: start: 20180226, end: 20180226
  8. DOBUPUM [Concomitant]
     Active Substance: DOBUTAMINE HYDROCHLORIDE
     Indication: SHOCK
     Dosage: UNK
     Route: 065
     Dates: start: 20180226, end: 20180304
  9. OMEPRAZOLE. [Concomitant]
     Active Substance: OMEPRAZOLE
     Dosage: 20 MG, UNK
     Route: 065
     Dates: start: 20180226, end: 20180304
  10. WARFARIN [Concomitant]
     Active Substance: WARFARIN
     Indication: CORONARY ARTERY BYPASS
     Dosage: 1 MG, QD
     Route: 048
     Dates: end: 20180226

REACTIONS (1)
  - Multiple organ dysfunction syndrome [Fatal]

NARRATIVE: CASE EVENT DATE: 20180304
